FAERS Safety Report 17870405 (Version 1)
Quarter: 2020Q2

REPORT INFORMATION
  Report Type: Spontaneous
  Country: CA (occurrence: CA)
  Receive Date: 20200608
  Receipt Date: 20200608
  Transmission Date: 20200714
  Serious: Yes (Other)
  Sender: FDA-Public Use
  Company Number: CA-NOVOPROD-731390

PATIENT
  Age: 60 Year
  Sex: Female

DRUGS (3)
  1. DUAVIVE [Suspect]
     Active Substance: BAZEDOXIFENE ACETATE\ESTROGENS, CONJUGATED
     Indication: VAGINAL HAEMORRHAGE
  2. VAGIFEM [Suspect]
     Active Substance: ESTRADIOL
     Indication: PRODUCT USED FOR UNKNOWN INDICATION
     Dosage: UNK
     Route: 065
  3. DUAVIVE [Suspect]
     Active Substance: BAZEDOXIFENE ACETATE\ESTROGENS, CONJUGATED
     Indication: POLYURIA
     Dosage: UNK
     Route: 065

REACTIONS (5)
  - Breast mass [Unknown]
  - Vaginal haemorrhage [Unknown]
  - Thrombosis [Unknown]
  - Polyuria [Unknown]
  - Weight decreased [Unknown]
